FAERS Safety Report 25165654 (Version 1)
Quarter: 2025Q2

REPORT INFORMATION
  Report Type: Report from Study
  Country: US (occurrence: US)
  Receive Date: 20250407
  Receipt Date: 20250407
  Transmission Date: 20250716
  Serious: Yes (Hospitalization, Other)
  Sender: JOHNSON AND JOHNSON
  Company Number: US-JNJFOC-20250386746

PATIENT
  Age: 48 Year
  Sex: Female

DRUGS (1)
  1. YONDELIS [Suspect]
     Active Substance: TRABECTEDIN
     Indication: Neoplasm

REACTIONS (6)
  - Hospitalisation [Unknown]
  - Sepsis [Unknown]
  - Syncope [Unknown]
  - Colonic abscess [Unknown]
  - Lung neoplasm malignant [Unknown]
  - Vomiting [Unknown]

NARRATIVE: CASE EVENT DATE: 20240623
